FAERS Safety Report 7480615-7 (Version None)
Quarter: 2011Q2

REPORT INFORMATION
  Report Type: 
  Country: None (occurrence: None)
  Receive Date: 20110504
  Receipt Date: 20110311
  Transmission Date: 20111010
  Serious: Yes (Other)
  Sender: FDA-Public Use
  Company Number: 2011SP017581

PATIENT

DRUGS (2)
  1. INTRON A [Suspect]
     Indication: HEPATITIS C
     Dates: start: 19980101, end: 20091201
  2. RIBAVIRIN [Suspect]
     Indication: HEPATITIS C
     Dosage: PO
     Route: 048
     Dates: start: 19980101, end: 20091201

REACTIONS (13)
  - DEPRESSION [None]
  - ASCITES [None]
  - EPISTAXIS [None]
  - PREGNANCY [None]
  - TREATMENT FAILURE [None]
  - WEIGHT DECREASED [None]
  - PYREXIA [None]
  - ALOPECIA [None]
  - ABORTION [None]
  - THROMBOCYTOPENIA [None]
  - ARTHRALGIA [None]
  - RASH [None]
  - DRUG EXPOSURE DURING PREGNANCY [None]
